FAERS Safety Report 6214208-6 (Version None)
Quarter: 2009Q2

REPORT INFORMATION
  Report Type: 
  Country: None (occurrence: None)
  Receive Date: 20090604
  Receipt Date: 20090528
  Transmission Date: 20091009
  Serious: Yes (Other)
  Sender: FDA-Public Use
  Company Number: US-BRISTOL-MYERS SQUIBB COMPANY-14646699

PATIENT

DRUGS (3)
  1. REYATAZ [Suspect]
     Dosage: NO OF COURSES:1
     Route: 064
     Dates: start: 20081205
  2. EPZICOM [Suspect]
     Dosage: 1DF=1TABS/CAPS[UNIT NOT SPECIFIED] NO OF COURSES:1
     Route: 064
     Dates: start: 20081205
  3. NORVIR [Suspect]
     Dosage: NO OF COURSES:1
     Route: 064
     Dates: start: 20081205

REACTIONS (1)
  - STILLBIRTH [None]
